FAERS Safety Report 17806847 (Version 1)
Quarter: 2020Q2

REPORT INFORMATION
  Report Type: Spontaneous
  Country: US (occurrence: US)
  Receive Date: 20200520
  Receipt Date: 20200520
  Transmission Date: 20200714
  Serious: No
  Sender: FDA-Public Use
  Company Number: US-PFIZER INC-2020198000

PATIENT
  Age: 61 Year
  Sex: Female
  Weight: 49.9 kg

DRUGS (2)
  1. FULVESTRANT. [Concomitant]
     Active Substance: FULVESTRANT
     Indication: BREAST CANCER
     Dosage: UNK, MONTHLY [INJECTION ONCE A MONTH]
     Dates: start: 201908
  2. IBRANCE [Suspect]
     Active Substance: PALBOCICLIB
     Indication: BREAST CANCER
     Dosage: 125 MG, CYCLIC (ONCE A DAY FOR 3 WEEKS THEN OFF FOR ONE WEEK)
     Route: 048
     Dates: start: 201908

REACTIONS (3)
  - Mouth haemorrhage [Recovering/Resolving]
  - Fatigue [Recovering/Resolving]
  - Pruritus [Recovered/Resolved]

NARRATIVE: CASE EVENT DATE: 201908
